FAERS Safety Report 7559943-2 (Version None)
Quarter: 2011Q2

REPORT INFORMATION
  Report Type: 
  Country: None (occurrence: None)
  Receive Date: 20110621
  Receipt Date: 20110607
  Transmission Date: 20111010
  Serious: Yes (Other)
  Sender: FDA-Public Use
  Company Number: PHHY2009CA46649

PATIENT
  Sex: Female
  Weight: 75 kg

DRUGS (10)
  1. ZOLEDRONIC ACID [Suspect]
     Indication: OSTEOPOROSIS
     Route: 042
     Dates: start: 20090916
  2. HRT [Concomitant]
  3. MIACALCIN [Concomitant]
     Dosage: 200 UKN
     Route: 045
  4. DIDROCAL [Concomitant]
     Dosage: 400 MG
  5. EVISTA [Concomitant]
     Dosage: 670 MG
  6. FORTEO [Concomitant]
     Dosage: 20 MG
  7. FOSAMAX [Concomitant]
     Dosage: 1 DF
     Dates: start: 20090301, end: 20090301
  8. CALCIUM CARBONATE [Concomitant]
     Dosage: 3000 MG
     Dates: start: 20060101
  9. ACTONEL [Concomitant]
     Dates: start: 20080901, end: 20080901
  10. VITAMIN D [Concomitant]
     Dosage: 400 IU
     Dates: start: 20060101

REACTIONS (6)
  - CONTUSION [None]
  - GENERAL PHYSICAL HEALTH DETERIORATION [None]
  - BREAST MASS [None]
  - DECREASED ACTIVITY [None]
  - FALL [None]
  - MUSCLE SPASMS [None]
